FAERS Safety Report 9129321 (Version 1)
Quarter: 2013Q1

REPORT INFORMATION
  Report Type: Spontaneous
  Country: CN (occurrence: CN)
  Receive Date: 20130125
  Receipt Date: 20130125
  Transmission Date: 20140127
  Serious: Yes (Death, Other)
  Sender: FDA-Public Use
  Company Number: CN-NAPPMUNDI-GBR-2013-0012852

PATIENT
  Age: 72 Year
  Sex: Female
  Weight: 65 kg

DRUGS (5)
  1. OXYCODONE HCL PR TABLET 20 MG [Suspect]
     Indication: CANCER PAIN
     Dosage: 20 MG, UNK
     Route: 048
     Dates: start: 20121226, end: 20121227
  2. MORPHINE HYDROCHLORIDE [Interacting]
     Indication: CANCER PAIN
     Dosage: 120 MG, UNK
     Route: 048
     Dates: start: 20121227, end: 20121227
  3. MORPHINE HYDROCHLORIDE [Interacting]
     Dosage: 30 MG, PM
     Route: 048
     Dates: start: 20121226
  4. MORPHINE HYDROCHLORIDE [Interacting]
     Dosage: 20 MG, UNK
     Dates: start: 20121226
  5. ANTIPSYCHOTICS [Interacting]
     Indication: PRODUCT USED FOR UNKNOWN INDICATION
     Dosage: 1 MG, UNK
     Route: 065
     Dates: start: 20121227, end: 20121227

REACTIONS (8)
  - Overdose [Unknown]
  - Drug interaction [Unknown]
  - Malignant neoplasm progression [Fatal]
  - Coma [Unknown]
  - Respiratory depression [Fatal]
  - Hypersomnia [Unknown]
  - Off label use [Recovered/Resolved]
  - Vomiting [Unknown]
